FAERS Safety Report 11111736 (Version 6)
Quarter: 2019Q4

REPORT INFORMATION
  Report Type: Spontaneous
  Country: CA (occurrence: CA)
  Receive Date: 20150514
  Receipt Date: 20191119
  Transmission Date: 20200122
  Serious: Yes (Other)
  Sender: FDA-Public Use
  Company Number: CA-ROCHE-1577851

PATIENT
  Age: 43 Year
  Sex: Female

DRUGS (3)
  1. XOLAIR [Suspect]
     Active Substance: OMALIZUMAB
     Indication: ASTHMA
     Route: 058
     Dates: start: 20100211
  2. PREDNISONE. [Suspect]
     Active Substance: PREDNISONE
     Indication: SINUS POLYP
     Route: 065
     Dates: start: 20150428
  3. CORTISONE [Suspect]
     Active Substance: CORTISONE
     Indication: PRODUCT USED FOR UNKNOWN INDICATION
     Route: 065

REACTIONS (14)
  - Anaphylactic shock [Unknown]
  - Weight increased [Unknown]
  - Blood cholesterol increased [Unknown]
  - Fatigue [Unknown]
  - Nasopharyngitis [Unknown]
  - Influenza [Recovered/Resolved]
  - Haematuria [Unknown]
  - Arthralgia [Unknown]
  - Amnesia [Unknown]
  - Mouth ulceration [Unknown]
  - Sinusitis [Unknown]
  - Blood iron decreased [Unknown]
  - Paranasal sinus discomfort [Unknown]
  - Sinus polyp [Unknown]

NARRATIVE: CASE EVENT DATE: 20141212
